FAERS Safety Report 9910869 (Version 2)
Quarter: 2014Q3

REPORT INFORMATION
  Report Type: Spontaneous
  Country: US (occurrence: US)
  Receive Date: 20140219
  Receipt Date: 20140710
  Transmission Date: 20150326
  Serious: Yes (Hospitalization, Disabling, Other)
  Sender: FDA-Public Use
  Company Number: US-009507513-1402USA005336

PATIENT
  Sex: Female
  Weight: 81.63 kg

DRUGS (2)
  1. NUVARING [Suspect]
     Active Substance: ETHINYL ESTRADIOL\ETONOGESTREL
     Dosage: UNK
     Route: 067
     Dates: start: 20110428, end: 20110707
  2. NUVARING [Suspect]
     Active Substance: ETHINYL ESTRADIOL\ETONOGESTREL
     Indication: CONTRACEPTION
     Dosage: UNK
     Route: 067
     Dates: start: 201102, end: 20110707

REACTIONS (14)
  - Venous injury [Unknown]
  - Pulmonary embolism [Unknown]
  - Cough [Unknown]
  - Pain in extremity [Unknown]
  - Maternal exposure before pregnancy [Unknown]
  - Angioplasty [Unknown]
  - Deep vein thrombosis [Recovering/Resolving]
  - Toothache [Unknown]
  - Headache [Unknown]
  - Transfusion [Unknown]
  - Thrombectomy [Unknown]
  - Thrombectomy [Unknown]
  - Angioplasty [Unknown]
  - Asthma [Unknown]

NARRATIVE: CASE EVENT DATE: 201106
